FAERS Safety Report 21047487 (Version 1)
Quarter: 2022Q3

REPORT INFORMATION
  Report Type: Spontaneous
  Country: US (occurrence: US)
  Receive Date: 20220706
  Receipt Date: 20220706
  Transmission Date: 20221026
  Serious: Yes (Life-Threatening, Hospitalization)
  Sender: FDA-Public Use
  Company Number: US-drreddys-LIT/USA/22/0151901

PATIENT
  Age: 34 Year
  Sex: Female

DRUGS (18)
  1. OXYTOCIN [Suspect]
     Active Substance: OXYTOCIN
     Indication: Uterine atony
  2. OXYTOCIN [Suspect]
     Active Substance: OXYTOCIN
     Indication: Postpartum haemorrhage
  3. OXYTOCIN [Suspect]
     Active Substance: OXYTOCIN
     Indication: Acute pulmonary oedema
  4. METHYLERGONOVINE [Suspect]
     Active Substance: METHYLERGONOVINE
     Indication: Uterine atony
  5. METHYLERGONOVINE [Suspect]
     Active Substance: METHYLERGONOVINE
     Indication: Postpartum haemorrhage
  6. METHYLERGONOVINE [Suspect]
     Active Substance: METHYLERGONOVINE
     Indication: Acute pulmonary oedema
  7. CARBOPROST TROMETHAMINE [Suspect]
     Active Substance: CARBOPROST TROMETHAMINE
     Indication: Uterine atony
  8. CARBOPROST TROMETHAMINE [Suspect]
     Active Substance: CARBOPROST TROMETHAMINE
     Indication: Postpartum haemorrhage
  9. CARBOPROST TROMETHAMINE [Suspect]
     Active Substance: CARBOPROST TROMETHAMINE
     Indication: Acute pulmonary oedema
  10. MISOPROSTOL [Suspect]
     Active Substance: MISOPROSTOL
     Indication: Uterine atony
  11. MISOPROSTOL [Suspect]
     Active Substance: MISOPROSTOL
     Indication: Postpartum haemorrhage
  12. MISOPROSTOL [Suspect]
     Active Substance: MISOPROSTOL
     Indication: Acute pulmonary oedema
  13. TRANEXAMIC ACID [Suspect]
     Active Substance: TRANEXAMIC ACID
     Indication: Uterine atony
  14. TRANEXAMIC ACID [Suspect]
     Active Substance: TRANEXAMIC ACID
     Indication: Postpartum haemorrhage
  15. TRANEXAMIC ACID [Suspect]
     Active Substance: TRANEXAMIC ACID
     Indication: Acute pulmonary oedema
  16. FUROSEMIDE [Suspect]
     Active Substance: FUROSEMIDE
     Indication: Uterine atony
  17. FUROSEMIDE [Suspect]
     Active Substance: FUROSEMIDE
     Indication: Postpartum haemorrhage
  18. FUROSEMIDE [Suspect]
     Active Substance: FUROSEMIDE
     Indication: Acute pulmonary oedema

REACTIONS (2)
  - Drug ineffective [Unknown]
  - Exposure during pregnancy [Unknown]
